FAERS Safety Report 8111145-7 (Version None)
Quarter: 2012Q1

REPORT INFORMATION
  Report Type: 
  Country: None (occurrence: None)
  Receive Date: 20120203
  Receipt Date: 20110517
  Transmission Date: 20120608
  Serious: No
  Sender: FDA-Public Use
  Company Number: US-GLAXOSMITHKLINE-A0927601A

PATIENT
  Age: 35 Year
  Sex: Female

DRUGS (6)
  1. QVAR 40 [Concomitant]
  2. MULTI-VITAMINS [Concomitant]
  3. LAMOTRIGINE [Suspect]
     Indication: BIPOLAR DISORDER
     Dosage: 150MG PER DAY
     Route: 048
     Dates: end: 20110516
  4. PREDNISONE TAB [Concomitant]
  5. ALBUTEROL [Concomitant]
  6. BENADRYL [Concomitant]

REACTIONS (2)
  - RASH [None]
  - MATERNAL EXPOSURE DURING PREGNANCY [None]
